FAERS Safety Report 17264815 (Version 4)
Quarter: 2020Q1

REPORT INFORMATION
  Report Type: Report from Study
  Country: FR (occurrence: FR)
  Receive Date: 20200113
  Receipt Date: 20200220
  Transmission Date: 20200409
  Serious: Yes (Hospitalization)
  Sender: FDA-Public Use
  Company Number: FR-CELGENEUS-FRA-20200103040

PATIENT
  Age: 72 Year
  Sex: Male
  Weight: 67 kg

DRUGS (22)
  1. ONDANSETRON [Concomitant]
     Active Substance: ONDANSETRON
     Indication: PROPHYLAXIS OF NAUSEA AND VOMITING
     Route: 048
     Dates: start: 20191118
  2. TRIMEBUTINE [Concomitant]
     Active Substance: TRIMEBUTINE
     Indication: DIVERTICULITIS
     Route: 048
     Dates: start: 20191118
  3. PREDNISONE. [Concomitant]
     Active Substance: PREDNISONE
     Indication: POLYCHONDRITIS
     Route: 048
     Dates: start: 20190501
  4. DAPSONE. [Concomitant]
     Active Substance: DAPSONE
     Dosage: 100 MILLIGRAM
     Route: 065
     Dates: start: 201812
  5. DAPSONE. [Concomitant]
     Active Substance: DAPSONE
     Dosage: 50 MILLIGRAM
     Route: 065
  6. SPECIAFOLDINE [Concomitant]
     Active Substance: FOLIC ACID
     Indication: PRODUCT USED FOR UNKNOWN INDICATION
     Route: 048
  7. CORTANCYL [Concomitant]
     Active Substance: PREDNISONE
     Dosage: 15 MILLIGRAM
     Route: 065
     Dates: start: 201812
  8. ACTONEL [Concomitant]
     Active Substance: RISEDRONATE SODIUM
     Indication: PRODUCT USED FOR UNKNOWN INDICATION
     Dosage: 35 MILLIGRAM
     Route: 048
  9. DOLIPRANE [Concomitant]
     Active Substance: ACETAMINOPHEN
     Indication: HEADACHE
     Route: 048
  10. NEFOPAM [Concomitant]
     Active Substance: NEFOPAM
     Indication: PAIN
     Route: 048
     Dates: start: 20191216, end: 20191218
  11. DAPSONE. [Concomitant]
     Active Substance: DAPSONE
     Dosage: 75 MILLIGRAM
     Route: 065
  12. CORTANCYL [Concomitant]
     Active Substance: PREDNISONE
     Dosage: 10 MILLIGRAM
     Route: 048
  13. DAPSONE. [Concomitant]
     Active Substance: DAPSONE
     Indication: POLYCHONDRITIS
     Dosage: 50 MILLIGRAM
     Route: 065
  14. PRIMPERAN [Concomitant]
     Active Substance: METOCLOPRAMIDE HYDROCHLORIDE
     Indication: PRODUCT USED FOR UNKNOWN INDICATION
     Route: 065
  15. AZACITIDINE. [Suspect]
     Active Substance: AZACITIDINE
     Indication: MYELODYSPLASTIC SYNDROME
     Dosage: 133 MILLIGRAM
     Route: 058
     Dates: start: 20191118, end: 20200128
  16. CALCIUM CHOLECALCIFEROL [Concomitant]
     Active Substance: CALCIUM CARBONATE\CHOLECALCIFEROL
     Dosage: 500 MG/400 IU SACHET
     Route: 048
  17. RISEDRONATE [Concomitant]
     Active Substance: RISEDRONATE SODIUM
     Indication: POLYCHONDRITIS
     Route: 048
     Dates: start: 20191014, end: 20200108
  18. CORTANCYL [Concomitant]
     Active Substance: PREDNISONE
     Dosage: 20 MILLIGRAM
     Route: 065
     Dates: start: 201812
  19. CALCIUM CHOLECALCIFEROL [Concomitant]
     Active Substance: CALCIUM CARBONATE\CHOLECALCIFEROL
     Indication: PRODUCT USED FOR UNKNOWN INDICATION
     Route: 048
  20. ACUPAN [Suspect]
     Active Substance: NEFOPAM HYDROCHLORIDE
     Indication: PRODUCT USED FOR UNKNOWN INDICATION
     Route: 065
     Dates: start: 20191216, end: 20191218
  21. DIFFU K [Concomitant]
     Active Substance: POTASSIUM CHLORIDE
     Indication: PRODUCT USED FOR UNKNOWN INDICATION
     Route: 048
  22. CORTANCYL [Concomitant]
     Active Substance: PREDNISONE
     Indication: POLYCHONDRITIS
     Dosage: 30 MILLIGRAM
     Route: 065
     Dates: start: 201808

REACTIONS (3)
  - Headache [Recovered/Resolved]
  - Posterior reversible encephalopathy syndrome [Recovered/Resolved]
  - Confusional state [Recovered/Resolved]

NARRATIVE: CASE EVENT DATE: 20191218
